FAERS Safety Report 21310063 (Version 1)
Quarter: 2022Q3

REPORT INFORMATION
  Report Type: Spontaneous
  Country: FR (occurrence: FR)
  Receive Date: 20220909
  Receipt Date: 20220909
  Transmission Date: 20221027
  Serious: Yes (Other)
  Sender: FDA-Public Use
  Company Number: FR-ROCHE-3166812

PATIENT
  Age: 78 Year
  Sex: Male
  Weight: 71.4 kg

DRUGS (13)
  1. DOXORUBICIN [Suspect]
     Active Substance: DOXORUBICIN
     Indication: Diffuse large B-cell lymphoma
     Dosage: ON 12/JUL/2022 AT 9:00 PM, HE RECEIVED THE MOST RECENT DOSE OF DOXORUBICIN (95 MG/M2) PRIOR TO AE ON
     Route: 042
     Dates: start: 20220712
  2. PREDNISONE [Suspect]
     Active Substance: PREDNISONE
     Indication: Diffuse large B-cell lymphoma
     Dosage: ON 16/JUL/2022, HE RECEIVED THE MOST RECENT DOSE OF PREDNISONE (100 MG) PRIOR TO AE ONSET
     Route: 048
     Dates: start: 20220712
  3. POLATUZUMAB VEDOTIN [Suspect]
     Active Substance: POLATUZUMAB VEDOTIN
     Indication: Diffuse large B-cell lymphoma
     Dosage: ON 12/JUL/2022 AT 10:30 PM, HE RECEIVED THE MOST RECENT DOSE OF POLATUZUMAB VEDOTIN (130 MG) PRIOR T
     Route: 042
     Dates: start: 20220712
  4. VINCRISTINE [Suspect]
     Active Substance: VINCRISTINE
     Indication: Diffuse large B-cell lymphoma
     Route: 042
  5. RITUXIMAB [Suspect]
     Active Substance: RITUXIMAB
     Indication: Diffuse large B-cell lymphoma
     Dosage: ON 12/JUL/2022 AT 3:45 PM, HE RECEIVED THE MOST RECENT DOSE OF RITUXIMAB (750 MG/M2) PRIOR TO AE ONS
     Route: 042
     Dates: start: 20220712
  6. CYCLOPHOSPHAMIDE [Suspect]
     Active Substance: CYCLOPHOSPHAMIDE
     Indication: Diffuse large B-cell lymphoma
     Dosage: ON 12/JUL/2022 AT 8:10 PM, HE RECEIVED THE MOST RECENT DOSE OF CYCLOPHOSPHAMIDE (1426 MG/M2) PRIOR T
     Route: 042
     Dates: start: 20220712
  7. ACETAMINOPHEN [Concomitant]
     Active Substance: ACETAMINOPHEN
     Indication: Product used for unknown indication
     Dosage: 1 GRAM
     Route: 065
     Dates: start: 20220802
  8. ACETAMINOPHEN [Concomitant]
     Active Substance: ACETAMINOPHEN
     Dosage: 1 GRAM
     Route: 065
     Dates: start: 20220712, end: 20220712
  9. MORPHINE SULFATE [Concomitant]
     Active Substance: MORPHINE SULFATE
     Indication: Pain
     Route: 065
  10. LYRICA [Concomitant]
     Active Substance: PREGABALIN
     Indication: Restless legs syndrome
     Route: 065
  11. SKENAN [Concomitant]
     Active Substance: MORPHINE SULFATE
     Indication: Pain
     Route: 065
  12. POLARAMINE [Concomitant]
     Active Substance: DEXCHLORPHENIRAMINE MALEATE
     Indication: Product used for unknown indication
     Dosage: 5 MILLIGRAM
     Route: 065
     Dates: start: 20220712, end: 20220712
  13. POLARAMINE [Concomitant]
     Active Substance: DEXCHLORPHENIRAMINE MALEATE
     Dosage: 5 MILLIGRAM
     Route: 065
     Dates: start: 20220802

REACTIONS (1)
  - Neutropenia [Recovered/Resolved]

NARRATIVE: CASE EVENT DATE: 20220720
